FAERS Safety Report 7228999-9 (Version None)
Quarter: 2011Q1

REPORT INFORMATION
  Report Type: 
  Country: None (occurrence: None)
  Receive Date: 20110117
  Receipt Date: 20110103
  Transmission Date: 20110831
  Serious: Yes (Hospitalization)
  Sender: FDA-Public Use
  Company Number: PHHY2011BR00694

PATIENT
  Sex: Female
  Weight: 80 kg

DRUGS (6)
  1. VERAPAMIL [Concomitant]
     Indication: CARDIAC DISORDER
     Dosage: UNK
  2. BUDECORT [Concomitant]
     Dosage: 6 MG, UNK
  3. FORASEQ [Suspect]
     Dosage: 1 INHALATION DAILY
     Dates: start: 20090601, end: 20110103
  4. HYDROCHLOROTHIAZIDE [Concomitant]
     Dosage: UNK
  5. MIFLONIDE [Concomitant]
     Dates: start: 20080101
  6. AEROLIN [Concomitant]
     Dosage: 100 MG, UNK

REACTIONS (9)
  - PULMONARY OEDEMA [None]
  - HEADACHE [None]
  - NAUSEA [None]
  - WHEEZING [None]
  - THROMBOSIS [None]
  - MUSCLE SPASMS [None]
  - MALAISE [None]
  - DYSPNOEA [None]
  - TACHYCARDIA [None]
